FAERS Safety Report 25089533 (Version 1)
Quarter: 2025Q1

REPORT INFORMATION
  Report Type: Spontaneous
  Country: US (occurrence: US)
  Receive Date: 20250318
  Receipt Date: 20250318
  Transmission Date: 20250409
  Serious: Yes (Other)
  Sender: Y-MABS THERAPEUTICS
  Company Number: US-Y-mAbs Therapeutics-2173137

PATIENT
  Age: 8 Year
  Sex: Male

DRUGS (6)
  1. DANYELZA [Suspect]
     Active Substance: NAXITAMAB-GQGK
     Indication: Neuroblastoma recurrent
     Dates: start: 20250208, end: 20250212
  2. IFOSFAMIDE [Concomitant]
     Active Substance: IFOSFAMIDE
  3. TIPIFARNIB [Concomitant]
     Active Substance: TIPIFARNIB
  4. LEUKINE [Concomitant]
     Active Substance: SARGRAMOSTIM
  5. ETOPOSIDE [Concomitant]
     Active Substance: ETOPOSIDE
  6. CARBOPLATIN [Concomitant]
     Active Substance: CARBOPLATIN

REACTIONS (5)
  - Streptococcal sepsis [Unknown]
  - Hypophosphataemia [Unknown]
  - Hypotension [Unknown]
  - Pain [Unknown]
  - Pancytopenia [Unknown]

NARRATIVE: CASE EVENT DATE: 20250208
